FAERS Safety Report 6014847-1 (Version None)
Quarter: 2008Q4

REPORT INFORMATION
  Report Type: 
  Country: None (occurrence: None)
  Receive Date: 20081219
  Receipt Date: 20081208
  Transmission Date: 20090506
  Serious: Yes (Hospitalization)
  Sender: FDA-Public Use
  Company Number: SE-PFIZER INC-2008150744

PATIENT

DRUGS (18)
  1. TROMBYL [Suspect]
     Dosage: UNK
  2. ATENOLOL [Suspect]
     Dates: end: 20080916
  3. PLAVIX [Suspect]
     Dates: end: 20080901
  4. ESTRIOL [Concomitant]
  5. SYMBICORT [Concomitant]
     Dosage: UNK
  6. SPIRIVA [Concomitant]
     Dosage: UNK
  7. SIMVASTATIN [Concomitant]
     Dosage: UNK
  8. ZOPICLONE [Concomitant]
     Dosage: UNK
  9. CITALOPRAM [Concomitant]
     Dosage: UNK
  10. BEHEPAN [Concomitant]
     Dosage: UNK
     Route: 048
  11. BRICANYL [Concomitant]
     Dosage: UNK
  12. MOLLIPECT [Concomitant]
     Dosage: UNK
     Route: 048
  13. BURINEX [Concomitant]
     Dosage: UNK
     Route: 048
  14. ETALPHA [Concomitant]
     Dosage: UNK
     Route: 048
  15. PANACOD [Concomitant]
     Dosage: UNK
  16. LACTULOSE [Concomitant]
     Dosage: UNK
  17. SPIRONOLACTONE [Concomitant]
     Dosage: UNK
  18. LANTUS [Concomitant]
     Dosage: UNK

REACTIONS (4)
  - BRADYCARDIA [None]
  - ENDOMETRIAL HYPERTROPHY [None]
  - PETIT MAL EPILEPSY [None]
  - POSTMENOPAUSAL HAEMORRHAGE [None]
